FAERS Safety Report 5870823-0 (Version None)
Quarter: 2008Q3

REPORT INFORMATION
  Report Type: 
  Country: None (occurrence: None)
  Receive Date: 20080904
  Receipt Date: 20080822
  Transmission Date: 20090109
  Serious: Yes (Hospitalization)
  Sender: FDA-Public Use
  Company Number: US-ELI_LILLY_AND_COMPANY-US200803002647

PATIENT
  Sex: Female
  Weight: 58.957 kg

DRUGS (3)
  1. ZYPREXA [Suspect]
     Dosage: 5 MG, UNK
     Dates: start: 20031223, end: 20040603
  2. MICROZIDE [Concomitant]
     Dates: start: 20031128
  3. SEROQUEL [Concomitant]
     Dates: start: 20040218

REACTIONS (2)
  - CYST [None]
  - DIABETES MELLITUS [None]
